FAERS Safety Report 17162399 (Version 1)
Quarter: 2019Q4

REPORT INFORMATION
  Report Type: Spontaneous
  Country: US (occurrence: US)
  Receive Date: 20191216
  Receipt Date: 20191216
  Transmission Date: 20200122
  Serious: Yes (Other)
  Sender: FDA-Public Use
  Company Number: None

PATIENT
  Age: 57 Year
  Sex: Female
  Weight: 60.75 kg

DRUGS (6)
  1. METOPROLOL TARTRATE. [Concomitant]
     Active Substance: METOPROLOL TARTRATE
  2. ARIPIPRAZOLE ORAL SOLUTION 1 MG [Suspect]
     Active Substance: ARIPIPRAZOLE
     Indication: CHRONIC FATIGUE SYNDROME
     Dosage: ?          QUANTITY:5 DROP(S);?
     Route: 048
     Dates: start: 20191004, end: 20191208
  3. VITAMIN D3 [Concomitant]
     Active Substance: CHOLECALCIFEROL
  4. VITAMIN B12 [Concomitant]
     Active Substance: CYANOCOBALAMIN
  5. MULTIVITAMIN [Concomitant]
     Active Substance: VITAMINS
  6. COENZYME Q10 [Concomitant]
     Active Substance: UBIDECARENONE

REACTIONS (4)
  - Retinal detachment [None]
  - Retinal degeneration [None]
  - Vitreous detachment [None]
  - Retinal tear [None]

NARRATIVE: CASE EVENT DATE: 20191204
